FAERS Safety Report 9695735 (Version 1)
Quarter: 2013Q4

REPORT INFORMATION
  Report Type: Spontaneous
  Country: US (occurrence: None)
  Receive Date: 20131118
  Receipt Date: 20131118
  Transmission Date: 20140711
  Serious: No
  Sender: FDA-Public Use
  Company Number: None

PATIENT
  Age: 16 Year
  Sex: Female
  Weight: 60.33 kg

DRUGS (5)
  1. LAMICTAL XR [Suspect]
     Indication: EPILEPSY
     Route: 048
     Dates: start: 20131108, end: 20131113
  2. KEPPRA XR [Concomitant]
  3. FOLIC ACID [Concomitant]
  4. IBUPROFEN [Concomitant]
  5. NAPROXEN [Concomitant]

REACTIONS (4)
  - Pain [None]
  - Rash erythematous [None]
  - Glossodynia [None]
  - Skin burning sensation [None]
